FAERS Safety Report 17145890 (Version 1)
Quarter: 2019Q4

REPORT INFORMATION
  Report Type: Spontaneous
  Country: US (occurrence: US)
  Receive Date: 20191120
  Receipt Date: 20191120
  Transmission Date: 20200122
  Serious: No
  Sender: FDA-Public Use
  Company Number: None

PATIENT
  Age: 70 Year
  Sex: Male

DRUGS (1)
  1. HUMIRA [Suspect]
     Active Substance: ADALIMUMAB
     Indication: RHEUMATOID ARTHRITIS
     Route: 058
     Dates: start: 201902

REACTIONS (8)
  - Depressed mood [None]
  - Disturbance in attention [None]
  - Chromaturia [None]
  - Back pain [None]
  - Insomnia [None]
  - Drug ineffective [None]
  - Injection site pain [None]
  - Dysuria [None]

NARRATIVE: CASE EVENT DATE: 201910
